FAERS Safety Report 14081262 (Version 1)
Quarter: 2017Q4

REPORT INFORMATION
  Report Type: Spontaneous
  Country: US (occurrence: None)
  Receive Date: 20171012
  Receipt Date: 20171012
  Transmission Date: 20180321
  Serious: Yes (Other)
  Sender: FDA-Public Use
  Company Number: None

PATIENT
  Age: 56 Year
  Sex: Female

DRUGS (1)
  1. CYMBALTA 60MG (GENERIC DULOXETINE) [Suspect]
     Active Substance: DULOXETINE HYDROCHLORIDE
     Indication: MAJOR DEPRESSION
     Dates: start: 20130108, end: 20140327

REACTIONS (2)
  - Panic disorder [None]
  - Major depression [None]

NARRATIVE: CASE EVENT DATE: 20140327
